FAERS Safety Report 5098263-5 (Version None)
Quarter: 2006Q3

REPORT INFORMATION
  Report Type: 
  Country: None (occurrence: None)
  Receive Date: 20060906
  Receipt Date: 20060619
  Transmission Date: 20061208
  Serious: No
  Sender: FDA-Public Use
  Company Number: US-GLAXOSMITHKLINE-A0609541A

PATIENT
  Age: 65 Year
  Sex: Male

DRUGS (2)
  1. REQUIP [Suspect]
     Indication: PARKINSON'S DISEASE
     Dosage: 4.5MG PER DAY
     Route: 048
     Dates: start: 20060401
  2. FLOMAX [Concomitant]

REACTIONS (2)
  - PENILE PAIN [None]
  - SKIN IRRITATION [None]
